FAERS Safety Report 10205088 (Version 1)
Quarter: 2014Q2

REPORT INFORMATION
  Report Type: Spontaneous
  Country: GB (occurrence: GB)
  Receive Date: 20140529
  Receipt Date: 20140529
  Transmission Date: 20141212
  Serious: Yes (Other)
  Sender: FDA-Public Use
  Company Number: GB-TEVA-482953ISR

PATIENT
  Sex: Male

DRUGS (2)
  1. BISOPROLOL [Suspect]
     Indication: PRODUCT USED FOR UNKNOWN INDICATION
  2. IVABRADINE [Interacting]
     Indication: HEART RATE INCREASED
     Dosage: 10 MILLIGRAM DAILY;

REACTIONS (3)
  - Heart rate decreased [Unknown]
  - Sinus arrest [Unknown]
  - Drug interaction [Unknown]
